FAERS Safety Report 14094503 (Version 1)
Quarter: 2017Q4

REPORT INFORMATION
  Report Type: Spontaneous
  Country: US (occurrence: US)
  Receive Date: 20171016
  Receipt Date: 20171016
  Transmission Date: 20180321
  Serious: No
  Sender: FDA-Public Use
  Company Number: US-HERITAGE PHARMACEUTICALS-2017HTG00249

PATIENT
  Sex: Female
  Weight: 77.98 kg

DRUGS (6)
  1. CALCIUM ACETATE. [Suspect]
     Active Substance: CALCIUM ACETATE
     Dosage: 169 MG, 1X/DAY
     Route: 048
     Dates: start: 2017, end: 2017
  2. ACYCLOVIR (CARLSBAD TECHNOLOGY) [Suspect]
     Active Substance: ACYCLOVIR
     Dosage: 400 MG, 1X/DAY
     Dates: start: 201707
  3. MULTIVITAMIN [Concomitant]
     Active Substance: VITAMINS
  4. VITAMIN D [Concomitant]
     Active Substance: CHOLECALCIFEROL
  5. CALCIUM ACETATE. [Suspect]
     Active Substance: CALCIUM ACETATE
     Indication: PHOSPHORUS METABOLISM DISORDER
     Dosage: 169 MG, 1X/DAY
     Route: 048
     Dates: start: 201707, end: 2017
  6. NINLARO [Concomitant]
     Active Substance: IXAZOMIB CITRATE

REACTIONS (1)
  - Flatulence [Recovered/Resolved]

NARRATIVE: CASE EVENT DATE: 2017
